FAERS Safety Report 18213814 (Version 1)
Quarter: 2020Q3

REPORT INFORMATION
  Report Type: Spontaneous
  Country: US (occurrence: US)
  Receive Date: 20200831
  Receipt Date: 20200831
  Transmission Date: 20201103
  Serious: No
  Sender: FDA-Public Use
  Company Number: US-TEVA-2020-US-1823182

PATIENT
  Age: 31 Year
  Sex: Female
  Weight: 81.6 kg

DRUGS (3)
  1. REMODULIN [Suspect]
     Active Substance: TREPROSTINIL
     Route: 041
     Dates: start: 20160623
  2. ALBUTEROL. [Suspect]
     Active Substance: ALBUTEROL
     Indication: PRODUCT USED FOR UNKNOWN INDICATION
     Route: 065
  3. ADCIRCA [Concomitant]
     Active Substance: TADALAFIL

REACTIONS (4)
  - Feeling abnormal [Unknown]
  - Device infusion issue [Unknown]
  - Palpitations [Unknown]
  - Device leakage [Recovered/Resolved]

NARRATIVE: CASE EVENT DATE: 2020
